FAERS Safety Report 6343080-9 (Version None)
Quarter: 2009Q3

REPORT INFORMATION
  Report Type: 
  Country: None (occurrence: None)
  Receive Date: 20090821
  Receipt Date: 20090602
  Transmission Date: 20100115
  Serious: No
  Sender: FDA-Public Use
  Company Number: 8046504

PATIENT
  Age: 51 Year
  Sex: Female
  Weight: 56.8 kg

DRUGS (8)
  1. CIMZIA [Suspect]
     Indication: CROHN'S DISEASE
     Dosage: 400 MG SC
     Route: 058
     Dates: start: 20090514
  2. COLAZAL [Concomitant]
  3. ATIVAN [Concomitant]
  4. COUMADIN [Concomitant]
  5. IMURAN [Concomitant]
  6. PREMARIN [Concomitant]
  7. ACIPHEX [Concomitant]
  8. VYTORIN [Concomitant]

REACTIONS (4)
  - ADVERSE DRUG REACTION [None]
  - ARTHRALGIA [None]
  - MYALGIA [None]
  - PRURITUS GENERALISED [None]
